FAERS Safety Report 17087469 (Version 3)
Quarter: 2020Q1

REPORT INFORMATION
  Report Type: Spontaneous
  Country: US (occurrence: US)
  Receive Date: 20191128
  Receipt Date: 20200109
  Transmission Date: 20200409
  Serious: Yes (Other)
  Sender: FDA-Public Use
  Company Number: US-BRISTOL-MYERS SQUIBB COMPANY-BMS-2019-109265

PATIENT
  Age: 72 Year
  Sex: Male
  Weight: 74.1 kg

DRUGS (5)
  1. VYNDAQEL [Suspect]
     Active Substance: TAFAMIDIS MEGLUMINE
     Indication: AMYLOIDOSIS
     Dosage: 20 MILLIGRAM, QID
     Route: 048
     Dates: start: 20191021
  2. ELIQUIS [Suspect]
     Active Substance: APIXABAN
     Indication: CARDIAC FAILURE CONGESTIVE
     Dosage: 5 MILLIGRAM, BID
     Route: 048
     Dates: start: 201612
  3. METOPROLOL. [Concomitant]
     Active Substance: METOPROLOL
     Indication: HYPERTENSION
     Dosage: 12.5 MILLIGRAM, QD
     Route: 065
  4. ATORVASTATIN [Concomitant]
     Active Substance: ATORVASTATIN
     Indication: BLOOD CHOLESTEROL
     Dosage: 40 MILLIGRAM, AT NIGHT
     Route: 065
  5. PLAVIX [Concomitant]
     Active Substance: CLOPIDOGREL BISULFATE
     Indication: PRODUCT USED FOR UNKNOWN INDICATION
     Dosage: 75 MILLIGRAM
     Route: 065

REACTIONS (14)
  - Cardiac failure congestive [Unknown]
  - Hypoaesthesia oral [Unknown]
  - Fluid retention [Unknown]
  - Lip dry [Unknown]
  - Joint swelling [Unknown]
  - Eating disorder [Unknown]
  - Intentional product use issue [Unknown]
  - Sciatica [Unknown]
  - Cardiac amyloidosis [Unknown]
  - Dry mouth [Unknown]
  - Peripheral swelling [Unknown]
  - Lip swelling [Unknown]
  - Taste disorder [Unknown]
  - Nausea [Unknown]

NARRATIVE: CASE EVENT DATE: 201912
